FAERS Safety Report 17018561 (Version 5)
Quarter: 2020Q4

REPORT INFORMATION
  Report Type: Spontaneous
  Country: FR (occurrence: FR)
  Receive Date: 20191111
  Receipt Date: 20201212
  Transmission Date: 20210113
  Serious: Yes (Hospitalization, Other)
  Sender: FDA-Public Use
  Company Number: ALC2019FR001334

PATIENT

DRUGS (7)
  1. LUCENTIS [Suspect]
     Active Substance: RANIBIZUMAB
     Indication: NEOVASCULAR AGE-RELATED MACULAR DEGENERATION
     Dosage: UNK
     Route: 031
     Dates: start: 20180307, end: 20180913
  2. LUCENTIS [Suspect]
     Active Substance: RANIBIZUMAB
     Dosage: UNK (RIGHT EYE)
     Route: 031
     Dates: start: 20181114, end: 20181114
  3. LUCENTIS [Suspect]
     Active Substance: RANIBIZUMAB
     Dosage: UNK (THREE INJECTIONS PERFORMED UNTIL 09 MAY 2020)
     Route: 047
  4. BETADINE [Suspect]
     Active Substance: POVIDONE-IODINE
     Indication: PRODUCT USED FOR UNKNOWN INDICATION
     Dosage: UNK
     Route: 065
  5. LUCENTIS [Suspect]
     Active Substance: RANIBIZUMAB
     Dosage: UNK (RIGHT EYE)
     Route: 031
     Dates: start: 20180913, end: 20180913
  6. LUCENTIS [Suspect]
     Active Substance: RANIBIZUMAB
     Dosage: UNK (RIGHT EYE)
     Route: 031
     Dates: start: 20180713, end: 20180713
  7. LUCENTIS [Suspect]
     Active Substance: RANIBIZUMAB
     Dosage: UNK (RIGHT EYE)
     Route: 031
     Dates: start: 20190215, end: 20190215

REACTIONS (3)
  - Diabetes mellitus [Recovered/Resolved with Sequelae]
  - Ocular discomfort [Recovering/Resolving]
  - Eye pain [Recovered/Resolved]

NARRATIVE: CASE EVENT DATE: 20180913
